FAERS Safety Report 16510272 (Version 1)
Quarter: 2019Q3

REPORT INFORMATION
  Report Type: Spontaneous
  Country: US (occurrence: US)
  Receive Date: 20190701
  Receipt Date: 20190701
  Transmission Date: 20191004
  Serious: Yes (Other)
  Sender: FDA-Public Use
  Company Number: None

PATIENT
  Age: 65 Year
  Sex: Female
  Weight: 53.1 kg

DRUGS (6)
  1. LORATADINE. [Concomitant]
     Active Substance: LORATADINE
  2. KETOTIFEN [Concomitant]
     Active Substance: KETOTIFEN
  3. LEVOTHYROXINE. [Concomitant]
     Active Substance: LEVOTHYROXINE
  4. DICLOFENAC SODIUM TOPICAL GEL 1% [Suspect]
     Active Substance: DICLOFENAC SODIUM
     Indication: EPICONDYLITIS
     Dosage: ?          OTHER STRENGTH:DOSING CARD;QUANTITY:1 3 INCHES OF GEL;?
     Route: 061
     Dates: start: 20190215, end: 20190225
  5. AZELASTINE. [Concomitant]
     Active Substance: AZELASTINE HYDROCHLORIDE
  6. SERTRALINE [Concomitant]
     Active Substance: SERTRALINE HYDROCHLORIDE

REACTIONS (2)
  - Skin burning sensation [None]
  - Skin discolouration [None]

NARRATIVE: CASE EVENT DATE: 20190215
